FAERS Safety Report 18559411 (Version 1)
Quarter: 2020Q4

REPORT INFORMATION
  Report Type: Spontaneous
  Country: US (occurrence: US)
  Receive Date: 20201127
  Receipt Date: 20201127
  Transmission Date: 20210114
  Serious: No
  Sender: FDA-Public Use
  Company Number: None

PATIENT
  Age: 48 Year
  Sex: Female
  Weight: 56.25 kg

DRUGS (6)
  1. BIEST BIOIDENTICAL HORMONE CREAM (ESTROGEN/PROGESTERONE) [Concomitant]
  2. MULTIVITAMIN [Concomitant]
     Active Substance: VITAMINS
  3. DULOXETINE HCL DR 20 MG [Suspect]
     Active Substance: DULOXETINE HYDROCHLORIDE
     Indication: FIBROMYALGIA
     Route: 048
     Dates: start: 20201124, end: 20201126
  4. VIT D [Concomitant]
     Active Substance: VITAMIN D NOS
  5. VIT B [Concomitant]
     Active Substance: VITAMIN B
  6. VITAMIN C [Concomitant]
     Active Substance: ASCORBIC ACID

REACTIONS (3)
  - Loss of consciousness [None]
  - Dizziness [None]
  - Syncope [None]

NARRATIVE: CASE EVENT DATE: 20201126
